FAERS Safety Report 15752013 (Version 2)
Quarter: 2018Q4

REPORT INFORMATION
  Report Type: Report from Study
  Country: FR (occurrence: FR)
  Receive Date: 20181221
  Receipt Date: 20181231
  Transmission Date: 20190205
  Serious: Yes (Death)
  Sender: FDA-Public Use
  Company Number: FR-PFIZER INC-2018526635

PATIENT

DRUGS (1)
  1. GEMCITABINE HYDROCHLORIDE. [Suspect]
     Active Substance: GEMCITABINE HYDROCHLORIDE
     Indication: PANCREATIC CARCINOMA METASTATIC
     Dosage: 1000 MG/M2, CYCLIC (30-MINUTE INTRAVENOUS INFUSION ON DAYS 1, 8, AND 15 EVERY 28 DAYS FOR 24 WEEKS (
     Route: 042

REACTIONS (1)
  - Interstitial lung disease [Fatal]
